FAERS Safety Report 8022866-9 (Version None)
Quarter: 2012Q1

REPORT INFORMATION
  Report Type: 
  Country: None (occurrence: None)
  Receive Date: 20120104
  Receipt Date: 20111125
  Transmission Date: 20120608
  Serious: Yes (Death, Other)
  Sender: FDA-Public Use
  Company Number: JP-ROCHE-1018756

PATIENT
  Age: 82 Year
  Sex: Male

DRUGS (2)
  1. ALTEPLASE [Suspect]
     Indication: EMBOLIC STROKE
     Route: 042
     Dates: start: 20110114, end: 20110114
  2. RADICUT [Concomitant]
     Route: 041
     Dates: start: 20110114, end: 20110127

REACTIONS (4)
  - PNEUMONIA [None]
  - HYPOXIA [None]
  - BRONCHITIS [None]
  - CEREBRAL HAEMORRHAGE [None]
